FAERS Safety Report 4551076-2 (Version None)
Quarter: 2005Q1

REPORT INFORMATION
  Report Type: 
  Country: None (occurrence: None)
  Receive Date: 20050113
  Receipt Date: 20040323
  Transmission Date: 20050727
  Serious: No
  Sender: FDA-Public Use
  Company Number: US-BRISTOL-MYERS SQUIBB COMPANY-12540506

PATIENT
  Age: 38 Year
  Sex: Female
  Weight: 61 kg

DRUGS (6)
  1. IFEX [Suspect]
     Indication: UTERINE CANCER
     Dosage: 2.5 G/M2 @20% DOSE REDUCTION FOR TOTAL 3 G ONCE FOR 3 DAYS
     Route: 042
  2. DOXORUBICIN HCL [Concomitant]
     Dosage: 2.5 MG/M2 @20% DOSE REDUCTION
     Route: 042
  3. KYTRIL [Concomitant]
     Dosage: ON DAY 1 AND DAY 2
  4. DEXAMETHASONE [Concomitant]
     Dosage: ON DAY 1 AND DAY 2
  5. ALOXI [Concomitant]
     Dosage: ON DAY 3
  6. COMPAZINE [Concomitant]
     Dosage: DAYS 1-3

REACTIONS (1)
  - HAEMATURIA [None]
